FAERS Safety Report 25724916 (Version 3)
Quarter: 2025Q3

REPORT INFORMATION
  Report Type: Report from Study
  Country: US (occurrence: US)
  Receive Date: 20250826
  Receipt Date: 20250917
  Transmission Date: 20251021
  Serious: Yes (Other)
  Sender: SAMSUNG BIOEPIS
  Company Number: US-SAMSUNG BIOEPIS-SB-2025-28390

PATIENT
  Age: 33 Year
  Sex: Female

DRUGS (2)
  1. HADLIMA [Suspect]
     Active Substance: ADALIMUMAB-BWWD
     Indication: Rheumatoid arthritis
     Dosage: 40MG/0.4ML;
     Route: 058
     Dates: start: 20250815
  2. GAS-X [Suspect]
     Active Substance: DIMETHICONE
     Indication: Abdominal pain

REACTIONS (8)
  - Coeliac disease [Not Recovered/Not Resolved]
  - Abdominal pain [Not Recovered/Not Resolved]
  - Musculoskeletal chest pain [Not Recovered/Not Resolved]
  - Diarrhoea [Recovering/Resolving]
  - Blood iron decreased [Unknown]
  - Serum ferritin decreased [Unknown]
  - Nasal congestion [Recovering/Resolving]
  - Exposure to communicable disease [Unknown]

NARRATIVE: CASE EVENT DATE: 20250816
